FAERS Safety Report 13341657 (Version 2)
Quarter: 2017Q2

REPORT INFORMATION
  Report Type: Spontaneous
  Country: GB (occurrence: GB)
  Receive Date: 20170316
  Receipt Date: 20170630
  Transmission Date: 20170830
  Serious: Yes (Death, Hospitalization, Other)
  Sender: FDA-Public Use
  Company Number: GB-TEVA-748900ACC

PATIENT
  Age: 67 Year
  Sex: Male

DRUGS (16)
  1. WARFARIN [Interacting]
     Active Substance: WARFARIN
     Indication: CARDIAC DISORDER
     Dosage: 10 MILLIGRAM DAILY;
     Dates: start: 201606
  2. WARFARIN [Interacting]
     Active Substance: WARFARIN
     Dosage: 5 MILLICURIES DAILY;
  3. GLYCERYL TRINITRATE [Concomitant]
     Active Substance: NITROGLYCERIN
  4. WARFARIN [Interacting]
     Active Substance: WARFARIN
     Dosage: 8 MILLIGRAM DAILY;
  5. ALLOPURINOL. [Concomitant]
     Active Substance: ALLOPURINOL
     Indication: GOUT
  6. TRAMADOL. [Concomitant]
     Active Substance: TRAMADOL
     Indication: OSTEOARTHRITIS
     Dates: start: 201511
  7. SPIRONOLACTONE. [Interacting]
     Active Substance: SPIRONOLACTONE
     Indication: FLUID RETENTION
     Dosage: 1 DOSAGE FORMS DAILY;
     Dates: end: 201611
  8. METOLAZONE. [Interacting]
     Active Substance: METOLAZONE
     Indication: FLUID RETENTION
     Dates: end: 201611
  9. ISOSORBIDE. [Concomitant]
     Active Substance: ISOSORBIDE
  10. WARFARIN [Interacting]
     Active Substance: WARFARIN
     Dosage: 7 MILLIGRAM DAILY;
  11. WARFARIN [Interacting]
     Active Substance: WARFARIN
     Dosage: 6 MILLIGRAM DAILY;
  12. ENALAPRIL [Concomitant]
     Active Substance: ENALAPRIL
  13. FUROSEMIDE. [Suspect]
     Active Substance: FUROSEMIDE
     Indication: FLUID RETENTION
     Dosage: 2 DOSAGE FORMS DAILY;
     Dates: start: 201611
  14. OMEPRAZOLE. [Concomitant]
     Active Substance: OMEPRAZOLE
     Dosage: 40 MILLIGRAM DAILY;
  15. LEVOTHYROXINE. [Concomitant]
     Active Substance: LEVOTHYROXINE
     Indication: HYPOTHYROIDISM
  16. OMEPRAZOLE. [Concomitant]
     Active Substance: OMEPRAZOLE

REACTIONS (15)
  - Therapeutic response decreased [Unknown]
  - Respiratory tract infection [Fatal]
  - Acute kidney injury [Unknown]
  - Lethargy [Unknown]
  - Muscle spasms [Unknown]
  - Asthenia [Unknown]
  - Sepsis [Fatal]
  - Orthopnoea [Not Recovered/Not Resolved]
  - Urine output decreased [Unknown]
  - Nausea [Unknown]
  - Respiratory failure [Unknown]
  - Rash [Unknown]
  - Dyspnoea at rest [Not Recovered/Not Resolved]
  - Drug interaction [Unknown]
  - Decreased appetite [Unknown]

NARRATIVE: CASE EVENT DATE: 201611
